FAERS Safety Report 17855372 (Version 1)
Quarter: 2020Q2

REPORT INFORMATION
  Report Type: Spontaneous
  Country: US (occurrence: US)
  Receive Date: 20200603
  Receipt Date: 20200603
  Transmission Date: 20200714
  Serious: Yes (Other)
  Sender: FDA-Public Use
  Company Number: None

PATIENT
  Age: 60 Year
  Sex: Female
  Weight: 78 kg

DRUGS (10)
  1. UNASYN [Concomitant]
     Active Substance: AMPICILLIN SODIUM\SULBACTAM SODIUM
  2. REMDESIVIR 100MG VIAL [Suspect]
     Active Substance: REMDESIVIR
     Route: 042
  3. LOVENOX [Concomitant]
     Active Substance: ENOXAPARIN SODIUM
  4. KEPPRA [Concomitant]
     Active Substance: LEVETIRACETAM
  5. VERSED [Concomitant]
     Active Substance: MIDAZOLAM HYDROCHLORIDE
  6. PROTONIX [Concomitant]
     Active Substance: PANTOPRAZOLE SODIUM
  7. FENTANYL. [Concomitant]
     Active Substance: FENTANYL
  8. REMDESIVIR 100MG VIAL [Suspect]
     Active Substance: REMDESIVIR
     Indication: COVID-19
     Route: 042
     Dates: start: 20200527, end: 20200530
  9. FUROSEMIDE. [Concomitant]
     Active Substance: FUROSEMIDE
  10. METOPROLOL. [Concomitant]
     Active Substance: METOPROLOL

REACTIONS (1)
  - Renal impairment [None]

NARRATIVE: CASE EVENT DATE: 20200531
